FAERS Safety Report 4914361-8 (Version None)
Quarter: 2006Q1

REPORT INFORMATION
  Report Type: 
  Country: None (occurrence: None)
  Receive Date: 20060213
  Receipt Date: 20060207
  Transmission Date: 20060701
  Serious: Yes (Hospitalization)
  Sender: FDA-Public Use
  Company Number: 144547USA

PATIENT
  Sex: Female

DRUGS (1)
  1. COPAXONE [Suspect]
     Indication: MULTIPLE SCLEROSIS

REACTIONS (8)
  - CHILLS [None]
  - CONVULSION [None]
  - DYSPHONIA [None]
  - HYPERTENSION [None]
  - HYSTERECTOMY [None]
  - IMMUNE SYSTEM DISORDER [None]
  - STOMACH DISCOMFORT [None]
  - VOMITING [None]
